FAERS Safety Report 8560279-1 (Version None)
Quarter: 2012Q3

REPORT INFORMATION
  Report Type: 
  Country: None (occurrence: None)
  Receive Date: 20120723
  Receipt Date: 20120710
  Transmission Date: 20120928
  Serious: Yes (Other)
  Sender: FDA-Public Use
  Company Number: DSM-2012-00761

PATIENT
  Sex: Female
  Weight: 68 kg

DRUGS (1)
  1. OLMESARTAN MEDOXOMIL/AMLODIPINE BESYLATE/HYDROCHLOROTHIAZIDE [Suspect]
     Indication: ESSENTIAL HYPERTENSION
     Dosage: 40/5/12.5 MG (1 IN 1 D), ORAL
     Route: 048
     Dates: start: 20110419, end: 20110509

REACTIONS (1)
  - DRUG HYPERSENSITIVITY [None]
